FAERS Safety Report 10063627 (Version 1)
Quarter: 2014Q2

REPORT INFORMATION
  Report Type: Spontaneous
  Country: US (occurrence: US)
  Receive Date: 20140407
  Receipt Date: 20140407
  Transmission Date: 20141212
  Serious: Yes (Hospitalization)
  Sender: FDA-Public Use
  Company Number: US-GILEAD-2014-0098963

PATIENT
  Age: 64 Year
  Sex: Female

DRUGS (8)
  1. LETAIRIS [Suspect]
     Indication: PULMONARY HYPERTENSION
     Dosage: 10 MG, QD
     Route: 065
     Dates: start: 20100216
  2. LASIX                              /00032601/ [Concomitant]
  3. SPIRONOLACTONE [Concomitant]
  4. FOLIC ACID [Concomitant]
  5. DIOVAN [Concomitant]
  6. INDAPAMIDE [Concomitant]
  7. CLARITIN                           /00413701/ [Concomitant]
  8. VERAMYST [Concomitant]

REACTIONS (1)
  - Catheterisation cardiac [Unknown]
